FAERS Safety Report 5507075-7 (Version None)
Quarter: 2007Q4

REPORT INFORMATION
  Report Type: 
  Country: None (occurrence: None)
  Receive Date: 20071102
  Receipt Date: 20071022
  Transmission Date: 20080405
  Serious: Yes (Hospitalization)
  Sender: FDA-Public Use
  Company Number: 2007S1000473

PATIENT
  Age: 60 Year
  Sex: Male

DRUGS (1)
  1. CUBICIN [Suspect]
     Indication: ENDOCARDITIS ENTEROCOCCAL
     Dosage: 6 MG/KG;Q24H;IV
     Route: 042

REACTIONS (6)
  - BLOOD CULTURE POSITIVE [None]
  - ENTEROCOCCAL BACTERAEMIA [None]
  - MINIMUM INHIBITORY CONCENTRATION [None]
  - MITRAL VALVE INCOMPETENCE [None]
  - REFUSAL OF TREATMENT BY PATIENT [None]
  - STREPTOCOCCAL INFECTION [None]
